FAERS Safety Report 23131764 (Version 1)
Quarter: 2023Q4

REPORT INFORMATION
  Report Type: Report from Study
  Country: CA (occurrence: CA)
  Receive Date: 20231031
  Receipt Date: 20231031
  Transmission Date: 20240110
  Serious: Yes (Other)
  Sender: FDA-Public Use
  Company Number: CA-ABBVIE-5469910

PATIENT
  Age: 69 Year
  Sex: Male

DRUGS (11)
  1. RISANKIZUMAB [Suspect]
     Active Substance: RISANKIZUMAB
     Indication: Crohn^s disease
     Dosage: INTRAVENOUS (NOT OTHERWISE SPECIFIED) ROA
     Route: 065
     Dates: start: 20230817
  2. BLACK SEED OIL [Concomitant]
     Indication: Product used for unknown indication
     Route: 048
     Dates: start: 201809
  3. DIGOXIN [Concomitant]
     Active Substance: DIGOXIN
     Indication: Atrial fibrillation
     Route: 048
     Dates: start: 202210
  4. EDOXABAN TOSYLATE [Concomitant]
     Active Substance: EDOXABAN TOSYLATE
     Indication: Atrial fibrillation
     Route: 048
     Dates: start: 20230726
  5. METOPROLOL [Concomitant]
     Active Substance: METOPROLOL
     Indication: Atrial fibrillation
     Route: 048
     Dates: start: 202210
  6. METFORMIN HYDROCHLORIDE [Concomitant]
     Active Substance: METFORMIN HYDROCHLORIDE
     Indication: Diabetes mellitus
     Route: 048
     Dates: start: 20221125
  7. PANTOPRAZOLE [Concomitant]
     Active Substance: PANTOPRAZOLE
     Indication: Gastrooesophageal reflux disease
     Route: 048
     Dates: start: 202306
  8. FERAMAX [Concomitant]
     Active Substance: IRON\POLYSACCHARIDES
     Indication: Iron deficiency
     Dosage: 1 CAPSULE
     Route: 048
     Dates: start: 202306
  9. LUTEIN\MINERALS\VITAMINS\ZEAXANTHIN [Concomitant]
     Active Substance: LUTEIN\MINERALS\VITAMINS\ZEAXANTHIN
     Indication: Macular degeneration
     Dosage: 1 TABLET
     Route: 048
     Dates: start: 202101
  10. MINERALS\VITAMINS [Concomitant]
     Active Substance: MINERALS\VITAMINS
     Indication: Supplementation therapy
     Dosage: 1 TABLET
     Dates: start: 201001
  11. PROBIOTICS NOS [Concomitant]
     Active Substance: PROBIOTICS NOS
     Indication: Product used for unknown indication
     Dosage: 1 CAPSULE
     Route: 048
     Dates: start: 202201

REACTIONS (1)
  - Non-small cell lung cancer [Not Recovered/Not Resolved]

NARRATIVE: CASE EVENT DATE: 20231025
